FAERS Safety Report 24064247 (Version 1)
Quarter: 2024Q3

REPORT INFORMATION
  Report Type: Spontaneous
  Country: CN (occurrence: CN)
  Receive Date: 20240709
  Receipt Date: 20240709
  Transmission Date: 20241017
  Serious: Yes (Hospitalization, Other)
  Sender: SANOFI AVENTIS
  Company Number: CN-SA-SAC20240703000839

PATIENT
  Age: 69 Year
  Sex: Female

DRUGS (1)
  1. PLAVIX [Suspect]
     Active Substance: CLOPIDOGREL BISULFATE
     Indication: Hypertension
     Dosage: 75 MG, QD
     Route: 048
     Dates: start: 20190208, end: 20240606

REACTIONS (8)
  - Upper gastrointestinal haemorrhage [Recovering/Resolving]
  - Syncope [Recovering/Resolving]
  - Gastric ulcer [Recovering/Resolving]
  - Melaena [Recovering/Resolving]
  - Diarrhoea [Recovering/Resolving]
  - Trismus [Recovering/Resolving]
  - Abdominal pain upper [Recovering/Resolving]
  - Anaemia [Recovering/Resolving]

NARRATIVE: CASE EVENT DATE: 20240606
